FAERS Safety Report 25217685 (Version 2)
Quarter: 2025Q3

REPORT INFORMATION
  Report Type: Spontaneous
  Country: CN (occurrence: CN)
  Receive Date: 20250420
  Receipt Date: 20250718
  Transmission Date: 20251021
  Serious: Yes (Other)
  Sender: BEIGENE
  Company Number: CN-BEIGENE-BGN-2025-005923

PATIENT
  Age: 63 Year
  Weight: 80 kg

DRUGS (16)
  1. TISLELIZUMAB [Suspect]
     Active Substance: TISLELIZUMAB
     Indication: Lung adenocarcinoma stage IV
  2. TISLELIZUMAB [Suspect]
     Active Substance: TISLELIZUMAB
  3. TISLELIZUMAB [Suspect]
     Active Substance: TISLELIZUMAB
     Route: 041
  4. TISLELIZUMAB [Suspect]
     Active Substance: TISLELIZUMAB
     Route: 041
  5. TISLELIZUMAB [Suspect]
     Active Substance: TISLELIZUMAB
     Dosage: 0.2 GRAM, Q3WK, D1
  6. TISLELIZUMAB [Suspect]
     Active Substance: TISLELIZUMAB
     Dosage: 0.2 GRAM, Q3WK, D1
  7. TISLELIZUMAB [Suspect]
     Active Substance: TISLELIZUMAB
     Dosage: 0.2 GRAM, Q3WK, D1
     Route: 041
  8. TISLELIZUMAB [Suspect]
     Active Substance: TISLELIZUMAB
     Dosage: 0.2 GRAM, Q3WK, D1
     Route: 041
  9. PEMETREXED [Suspect]
     Active Substance: PEMETREXED
     Indication: Lung adenocarcinoma stage IV
  10. PEMETREXED [Suspect]
     Active Substance: PEMETREXED
     Route: 041
  11. PEMETREXED [Suspect]
     Active Substance: PEMETREXED
     Route: 041
  12. PEMETREXED [Suspect]
     Active Substance: PEMETREXED
  13. CATEQUENTINIB DIHYDROCHLORIDE [Suspect]
     Active Substance: CATEQUENTINIB DIHYDROCHLORIDE
     Indication: Lung adenocarcinoma stage IV
     Dosage: 10 MILLIGRAM, QD
  14. CATEQUENTINIB DIHYDROCHLORIDE [Suspect]
     Active Substance: CATEQUENTINIB DIHYDROCHLORIDE
     Dosage: 10 MILLIGRAM, QD
     Route: 048
  15. CATEQUENTINIB DIHYDROCHLORIDE [Suspect]
     Active Substance: CATEQUENTINIB DIHYDROCHLORIDE
     Dosage: 10 MILLIGRAM, QD
     Route: 048
  16. CATEQUENTINIB DIHYDROCHLORIDE [Suspect]
     Active Substance: CATEQUENTINIB DIHYDROCHLORIDE
     Dosage: 10 MILLIGRAM, QD

REACTIONS (1)
  - Myelosuppression [Recovered/Resolved]
